FAERS Safety Report 14843748 (Version 3)
Quarter: 2018Q2

REPORT INFORMATION
  Report Type: Spontaneous
  Country: BG (occurrence: BG)
  Receive Date: 20180503
  Receipt Date: 20180529
  Transmission Date: 20180711
  Serious: Yes (Death, Other)
  Sender: FDA-Public Use
  Company Number: BG-BAYER-2018-080483

PATIENT
  Age: 67 Year
  Sex: Female

DRUGS (2)
  1. NEXAVAR [Suspect]
     Active Substance: SORAFENIB
     Indication: RENAL CELL CARCINOMA
     Dosage: 200 MG, BID
     Route: 048
     Dates: start: 201510
  2. NEXAVAR [Suspect]
     Active Substance: SORAFENIB
     Indication: HEPATOCELLULAR CARCINOMA

REACTIONS (5)
  - Osteolysis [None]
  - Malignant neoplasm progression [None]
  - Back pain [None]
  - Off label use [None]
  - Death [Fatal]

NARRATIVE: CASE EVENT DATE: 20160426
